FAERS Safety Report 6354732-9 (Version None)
Quarter: 2009Q3

REPORT INFORMATION
  Report Type: 
  Country: None (occurrence: None)
  Receive Date: 20090909
  Receipt Date: 20090818
  Transmission Date: 20100115
  Serious: Yes (Hospitalization)
  Sender: FDA-Public Use
  Company Number: DSA_41565_2009

PATIENT
  Age: 53 Year
  Sex: Female

DRUGS (7)
  1. WELLBUTRIN XL [Suspect]
     Indication: DEPRESSION
     Dosage: 300 MG QD ORAL
     Route: 048
  2. SAVELLA [Suspect]
     Indication: FIBROMYALGIA
     Dosage: 12.5 MG QD ORAL
     Route: 048
     Dates: start: 20090615, end: 20090616
  3. CHANTIX [Suspect]
     Indication: SMOKING CESSATION THERAPY
     Dosage: STARTER PACK
  4. AMITRIPTYLINE HCL [Suspect]
     Indication: INSOMNIA
     Dosage: 50 MG QD ORAL
     Route: 048
  5. CLONAZEPAM [Suspect]
     Indication: ANXIETY
     Dosage: 2 MG BID
  6. PERCOCET [Concomitant]
  7. NORVASC [Concomitant]

REACTIONS (2)
  - DRUG EFFECT DECREASED [None]
  - SEROTONIN SYNDROME [None]
